FAERS Safety Report 4650387-X (Version None)
Quarter: 2005Q2

REPORT INFORMATION
  Report Type: 
  Country: None (occurrence: None)
  Receive Date: 20050429
  Receipt Date: 20050415
  Transmission Date: 20051028
  Serious: Yes (Hospitalization)
  Sender: FDA-Public Use
  Company Number: F01200500152

PATIENT
  Age: 56 Year
  Sex: Male

DRUGS (6)
  1. OXALIPLATIN - SOLUTION - 85 MG/M2 [Suspect]
     Indication: OESOPHAGEAL CARCINOMA
     Dosage: 150 MG, Q2W, INTRAVENOUS NOS
     Route: 042
     Dates: start: 20050117, end: 20050117
  2. FLUOROURACIL [Suspect]
     Dosage: 374 MG BOLUS AND 1122 MG CONTINUOUS INFUSION, Q2W, INTRAVENOUS NOS
     Route: 042
     Dates: start: 20050118, end: 20050117
  3. LEUCOVORIN CALCIUM [Suspect]
     Dosage: 374 MG Q2W, INTRAVENOUS NOS
     Route: 042
     Dates: start: 20050117, end: 20050118
  4. ONDANSETRON HYDROCHLORIDE [Concomitant]
  5. EFFERALGAN (PARACEMATOL) [Concomitant]
  6. GAVISCON (ALIGINIC ACID/ALUMINIUM HYDROXIDE/SODIUM BICARBONATE) [Concomitant]

REACTIONS (1)
  - DYSPHAGIA [None]
